FAERS Safety Report 13688036 (Version 1)
Quarter: 2017Q2

REPORT INFORMATION
  Report Type: Spontaneous
  Country: US (occurrence: US)
  Receive Date: 20170626
  Receipt Date: 20170626
  Transmission Date: 20170830
  Serious: No
  Sender: FDA-Public Use
  Company Number: US-TEVA-693871USA

PATIENT

DRUGS (1)
  1. ADAPALENE. [Suspect]
     Active Substance: ADAPALENE
     Indication: ACNE

REACTIONS (2)
  - Acne [Unknown]
  - Drug ineffective [Unknown]
